FAERS Safety Report 7784509-9 (Version None)
Quarter: 2011Q3

REPORT INFORMATION
  Report Type: 
  Country: None (occurrence: None)
  Receive Date: 20110928
  Receipt Date: 20110919
  Transmission Date: 20111222
  Serious: Yes (Hospitalization)
  Sender: FDA-Public Use
  Company Number: US-JNJFOC-20110203350

PATIENT
  Sex: Female
  Weight: 10.9 kg

DRUGS (9)
  1. LEUKINE [Concomitant]
  2. ANTIBIOTICS [Concomitant]
  3. LEUKINE [Concomitant]
     Dates: start: 20100222, end: 20100710
  4. ACETAMINOPHEN [Concomitant]
  5. MUPIROCIN [Concomitant]
  6. INFLIXIMAB, RECOMBINANT [Suspect]
     Indication: INFLAMMATORY BOWEL DISEASE
     Route: 042
     Dates: start: 20090905, end: 20091015
  7. PREVACID [Concomitant]
  8. FERROUS SULFATE TAB [Concomitant]
  9. ALBUTEROL [Concomitant]

REACTIONS (2)
  - ENTEROBACTER INFECTION [None]
  - TACHYPNOEA [None]
